FAERS Safety Report 11916236 (Version 2)
Quarter: 2016Q1

REPORT INFORMATION
  Report Type: Spontaneous
  Country: JP (occurrence: JP)
  Receive Date: 20160114
  Receipt Date: 20160121
  Transmission Date: 20160526
  Serious: Yes (Other)
  Sender: FDA-Public Use
  Company Number: JP-SHIONOGI, INC-2016000014

PATIENT

DRUGS (1)
  1. FINIBAX [Suspect]
     Active Substance: DORIPENEM MONOHYDRATE
     Indication: SEPSIS
     Dosage: 1 G, QD
     Route: 041
     Dates: start: 20151225, end: 20160101

REACTIONS (2)
  - Candida infection [Unknown]
  - Pseudomembranous colitis [Unknown]

NARRATIVE: CASE EVENT DATE: 20160105
